FAERS Safety Report 8318103-8 (Version None)
Quarter: 2012Q2

REPORT INFORMATION
  Report Type: 
  Country: None (occurrence: None)
  Receive Date: 20120427
  Receipt Date: 20120417
  Transmission Date: 20120825
  Serious: Yes (Death)
  Sender: FDA-Public Use
  Company Number: US-ROCHE-1059191

PATIENT
  Sex: Female

DRUGS (7)
  1. ZELBORAF [Suspect]
     Indication: PRODUCT USED FOR UNKNOWN INDICATION
  2. OXYCODONE HCL [Concomitant]
  3. DECADRON [Concomitant]
  4. FEXOFENADINE [Concomitant]
  5. METOPROLOL TARTRATE [Concomitant]
  6. FENTANYL [Concomitant]
  7. DIAZEPAM [Concomitant]

REACTIONS (2)
  - METASTATIC MALIGNANT MELANOMA [None]
  - METASTASIS [None]
